FAERS Safety Report 11103450 (Version 2)
Quarter: 2015Q2

REPORT INFORMATION
  Report Type: Report from Study
  Country: GB (occurrence: GB)
  Receive Date: 20150511
  Receipt Date: 20150601
  Transmission Date: 20150821
  Serious: Yes (Hospitalization, Other)
  Sender: FDA-Public Use
  Company Number: GB-GLAXOSMITHKLINE-GB2015GSK061633

PATIENT
  Sex: Male
  Weight: 90.8 kg

DRUGS (17)
  1. ONCASPAR [Suspect]
     Active Substance: PEGASPARGASE
     Indication: PRODUCT USED FOR UNKNOWN INDICATION
     Dosage: 2300 IU, UNK
     Route: 042
     Dates: start: 20150125, end: 20150208
  2. PARACETAMOL [Concomitant]
     Active Substance: ACETAMINOPHEN
     Indication: PAIN
     Dosage: 1000 MG, PRN
     Dates: start: 20150327
  3. NORMAL SALINE [Concomitant]
     Active Substance: SODIUM CHLORIDE
     Indication: MOUTH ULCERATION
     Dosage: 10 ML, QD
     Dates: start: 20150217
  4. ACICLOVIR [Concomitant]
     Active Substance: ACYCLOVIR
     Indication: FUNGAL INFECTION
     Dosage: 400 MG, BID
     Route: 048
     Dates: start: 20150114
  5. TAZOCIN [Concomitant]
     Active Substance: PIPERACILLIN SODIUM\TAZOBACTAM SODIUM
     Indication: INFECTION
     Dosage: 4.5 G, TID
     Dates: start: 20150413, end: 20150415
  6. OMEPRAZOLE. [Concomitant]
     Active Substance: OMEPRAZOLE
     Dosage: 20 MG, 1D
     Route: 048
     Dates: start: 20150328
  7. COTRIMOXAZOLE [Concomitant]
     Active Substance: SULFAMETHOXAZOLE\TRIMETHOPRIM
     Dosage: 480 MG, 1D
     Route: 048
     Dates: start: 20150114
  8. CIPROFLOXACIN. [Concomitant]
     Active Substance: CIPROFLOXACIN
     Indication: INFECTION
     Dosage: 600 MG, BID
     Dates: start: 20150328
  9. DALTEPARIN [Concomitant]
     Active Substance: DALTEPARIN
     Indication: PULMONARY EMBOLISM
     Dosage: 5000 UNK, 1D
     Route: 058
     Dates: start: 20150120
  10. BENZYDAMINE [Concomitant]
     Active Substance: BENZYDAMINE
     Indication: MOUTH ULCERATION
     Dosage: 10 ML, QD
     Route: 048
     Dates: start: 20150201
  11. NYSTATIN. [Concomitant]
     Active Substance: NYSTATIN
     Indication: MOUTH ULCERATION
     Dosage: 1 ML, QD
     Route: 048
     Dates: start: 20150328
  12. ONDANSETRON [Concomitant]
     Active Substance: ONDANSETRON
     Indication: NAUSEA
     Dosage: 8 MG, BID
     Route: 048
     Dates: start: 20150328
  13. ZARZIO [Concomitant]
     Active Substance: FILGRASTIM
     Dosage: 300 MG, 1D
     Route: 058
     Dates: start: 20150413, end: 20150419
  14. MERCAPTOPURIN [Concomitant]
     Dosage: 125 MG, UNK
     Route: 048
     Dates: start: 20150309, end: 20150404
  15. NELARABINE [Suspect]
     Active Substance: NELARABINE
     Indication: ACUTE LYMPHOCYTIC LEUKAEMIA
  16. AMIKACIN [Concomitant]
     Active Substance: AMIKACIN
     Indication: INFECTION
     Dosage: 1.4 G, 1D
     Route: 042
     Dates: start: 20150413, end: 20150414
  17. CYTARABINE. [Concomitant]
     Active Substance: CYTARABINE
     Dosage: 161.25 UG, UNK
     Route: 042
     Dates: start: 20150309, end: 20150403

REACTIONS (1)
  - Leukoencephalopathy [Recovered/Resolved]

NARRATIVE: CASE EVENT DATE: 20150415
